FAERS Safety Report 8505058-6 (Version None)
Quarter: 2012Q3

REPORT INFORMATION
  Report Type: 
  Country: None (occurrence: None)
  Receive Date: 20120712
  Receipt Date: 20120703
  Transmission Date: 20120928
  Serious: Yes (Hospitalization, Other)
  Sender: FDA-Public Use
  Company Number: JP-VERTEX PHARMACEUTICALS INC.-AE-2012-007664

PATIENT
  Age: 64 Year
  Sex: Female

DRUGS (17)
  1. TELAVIC (TELAPREVIR) [Suspect]
     Indication: HEPATITIS C
     Route: 048
     Dates: start: 20120403, end: 20120406
  2. PEG-INTRON [Concomitant]
     Indication: HEPATITIS C
     Route: 058
     Dates: start: 20120403, end: 20120529
  3. ROHYPNOL [Concomitant]
     Route: 048
     Dates: end: 20120430
  4. SELBEX [Concomitant]
     Route: 048
     Dates: start: 20120403, end: 20120606
  5. HIRUDOID SOFT OINTMENT [Concomitant]
     Route: 061
  6. PEG-INTRON [Concomitant]
     Route: 058
     Dates: start: 20120622
  7. LOXOPROFEN [Concomitant]
     Route: 048
     Dates: start: 20120403, end: 20120606
  8. ALLEGRA [Concomitant]
     Route: 048
  9. TELAVIC (TELAPREVIR) [Suspect]
     Route: 048
     Dates: start: 20120417, end: 20120524
  10. ALLOPURINOL [Concomitant]
     Route: 048
     Dates: start: 20120530, end: 20120606
  11. URSO 250 [Concomitant]
     Route: 048
     Dates: end: 20120408
  12. MAGMITT [Concomitant]
     Route: 048
     Dates: start: 20120403
  13. REBETOL [Concomitant]
     Indication: HEPATITIS C
     Route: 048
     Dates: start: 20120403, end: 20120406
  14. REBETOL [Concomitant]
     Route: 048
     Dates: start: 20120502, end: 20120524
  15. REBETOL [Concomitant]
     Route: 048
     Dates: start: 20120410, end: 20120501
  16. REBETOL [Concomitant]
     Route: 048
     Dates: start: 20120622
  17. ROHYPNOL [Concomitant]
     Route: 048
     Dates: start: 20120601

REACTIONS (3)
  - ASCITES [None]
  - PANCYTOPENIA [None]
  - HAEMOGLOBIN DECREASED [None]
